FAERS Safety Report 6071511-0 (Version None)
Quarter: 2009Q1

REPORT INFORMATION
  Report Type: 
  Country: None (occurrence: None)
  Receive Date: 20090206
  Receipt Date: 20090206
  Transmission Date: 20090719
  Serious: No
  Sender: FDA-Public Use
  Company Number: None

PATIENT
  Sex: Male
  Weight: 94.1214 kg

DRUGS (1)
  1. BUPROPION SR /50MG (WATSON) [Suspect]
     Indication: DEPRESSION
     Dosage: 150 MG BID PO
     Route: 048

REACTIONS (2)
  - ANXIETY [None]
  - MALAISE [None]
